FAERS Safety Report 9873940 (Version 2)
Quarter: 2014Q1

REPORT INFORMATION
  Report Type: Other
  Country: US (occurrence: US)
  Receive Date: 20140206
  Receipt Date: 20140206
  Transmission Date: 20141002
  Serious: No
  Sender: FDA-Public Use
  Company Number: US-ACORDA-ACO_35141_2013

PATIENT
  Sex: Female

DRUGS (4)
  1. AMPYRA [Suspect]
     Indication: GAIT DISTURBANCE
     Dosage: 10 MG, Q 12 HRS
     Route: 048
     Dates: start: 201010
  2. COPAXONE [Concomitant]
     Indication: MULTIPLE SCLEROSIS
     Dosage: 20 MG, QD
     Route: 058
     Dates: start: 200412
  3. OXYBUTYNIN [Concomitant]
     Indication: NEUROGENIC BLADDER
     Dosage: 10 MG, BID
     Route: 048
  4. SOLUMEDROL [Concomitant]
     Indication: MULTIPLE SCLEROSIS
     Dosage: 1 G, EVERY 4 WEEKS
     Route: 042
     Dates: start: 200607

REACTIONS (3)
  - Mobility decreased [Unknown]
  - Fall [Unknown]
  - Excoriation [Unknown]
